FAERS Safety Report 19516979 (Version 1)
Quarter: 2021Q3

REPORT INFORMATION
  Report Type: Spontaneous
  Country: CN (occurrence: CN)
  Receive Date: 20210711
  Receipt Date: 20210711
  Transmission Date: 20211014
  Serious: Yes (Life-Threatening, Hospitalization, Other)
  Sender: FDA-Public Use
  Company Number: CN-BAXTER-2021BAX019987

PATIENT
  Age: 71 Year
  Sex: Male

DRUGS (12)
  1. 0.9% SODIUM CHLORIDE INJECTION [Suspect]
     Active Substance: SODIUM CHLORIDE
     Dosage: BORTEZOMIB FOR INJECTION 2.2MG + 0.9% SODIUM CHLORIDE INJECTION 1ML
     Route: 058
     Dates: start: 20210626, end: 20210626
  2. BORTEZOMIB. [Suspect]
     Active Substance: BORTEZOMIB
     Dosage: BORTEZOMIB FOR INJECTION 2.2MG + 0.9% SODIUM CHLORIDE INJECTION 1ML
     Route: 058
     Dates: start: 20210623, end: 20210623
  3. BORTEZOMIB. [Suspect]
     Active Substance: BORTEZOMIB
     Dosage: BORTEZOMIB FOR INJECTION 2.2MG + 0.9% SODIUM CHLORIDE INJECTION 1ML
     Route: 058
     Dates: start: 20210626, end: 20210626
  4. ENDOXAN [Suspect]
     Active Substance: CYCLOPHOSPHAMIDE
     Dosage: ENDOXAN FOR INJECTION 0.5G + 0.9% SODIUM CHLORIDE INJECTION 100ML
     Route: 041
     Dates: start: 20210623, end: 20210623
  5. BORTEZOMIB. [Suspect]
     Active Substance: BORTEZOMIB
     Indication: PLASMA CELL MYELOMA
     Dosage: BORTEZOMIB FOR INJECTION 2.2MG + 0.9% SODIUM CHLORIDE INJECTION 1ML
     Route: 058
     Dates: start: 20210616, end: 20210616
  6. ENDOXAN [Suspect]
     Active Substance: CYCLOPHOSPHAMIDE
     Indication: PLASMA CELL MYELOMA
     Dosage: ENDOXAN FOR INJECTION 0.5G + 0.9% SODIUM CHLORIDE INJECTION 100ML
     Route: 041
     Dates: start: 20210616, end: 20210616
  7. 0.9% SODIUM CHLORIDE INJECTION [Suspect]
     Active Substance: SODIUM CHLORIDE
     Dosage: BORTEZOMIB FOR INJECTION 2.2MG + 0.9% SODIUM CHLORIDE INJECTION 1ML
     Route: 058
     Dates: start: 20210616, end: 20210616
  8. 0.9% SODIUM CHLORIDE INJECTION [Suspect]
     Active Substance: SODIUM CHLORIDE
     Dosage: BORTEZOMIB FOR INJECTION 2.2MG + 0.9% SODIUM CHLORIDE INJECTION 1ML
     Route: 058
     Dates: start: 20210619, end: 20210619
  9. 0.9% SODIUM CHLORIDE INJECTION [Suspect]
     Active Substance: SODIUM CHLORIDE
     Dosage: BORTEZOMIB FOR INJECTION 2.2MG + 0.9% SODIUM CHLORIDE INJECTION 1ML
     Route: 058
     Dates: start: 20210623, end: 20210623
  10. BORTEZOMIB. [Suspect]
     Active Substance: BORTEZOMIB
     Dosage: BORTEZOMIB FOR INJECTION 2.2MG + 0.9% SODIUM CHLORIDE INJECTION 1ML
     Route: 058
     Dates: start: 20210619, end: 20210619
  11. 0.9% SODIUM CHLORIDE INJECTION [Suspect]
     Active Substance: SODIUM CHLORIDE
     Indication: MEDICATION DILUTION
     Dosage: ENDOXAN FOR INJECTION 0.5G + 0.9% SODIUM CHLORIDE INJECTION 100ML
     Route: 041
     Dates: start: 20210616, end: 20210616
  12. 0.9% SODIUM CHLORIDE INJECTION [Suspect]
     Active Substance: SODIUM CHLORIDE
     Dosage: ENDOXAN FOR INJECTION 0.5G + 0.9% SODIUM CHLORIDE INJECTION 100ML
     Route: 041
     Dates: start: 20210623, end: 20210623

REACTIONS (3)
  - Platelet count decreased [Unknown]
  - Thrombocytopenia [Unknown]
  - White blood cell count decreased [Unknown]

NARRATIVE: CASE EVENT DATE: 20210629
